FAERS Safety Report 11239177 (Version 2)
Quarter: 2015Q3

REPORT INFORMATION
  Report Type: Report from Study
  Country: US (occurrence: None)
  Receive Date: 20150701
  Receipt Date: 20150727
  Transmission Date: 20151125
  Serious: Yes (Other)
  Sender: FDA-Public Use
  Company Number: 2014TASUS000647

PATIENT
  Age: 61 Year
  Sex: Male
  Weight: 89.3 kg

DRUGS (9)
  1. AMLODIPINE (AMLODIPINE BESILATE) [Concomitant]
  2. ZOLPIDEM [Concomitant]
     Active Substance: ZOLPIDEM\ZOLPIDEM TARTRATE
  3. GABAPENTIN. [Concomitant]
     Active Substance: GABAPENTIN
  4. TRAVATAN Z [Concomitant]
     Active Substance: TRAVOPROST
  5. HETLIOZ [Suspect]
     Active Substance: TASIMELTEON
     Indication: CIRCADIAN RHYTHM SLEEP DISORDER
     Route: 048
     Dates: start: 20141227, end: 20141231
  6. LISINOPRIL. [Concomitant]
     Active Substance: LISINOPRIL
  7. TRAMADOL (TRAMADOL HYDROCHLORIDE) [Concomitant]
     Active Substance: TRAMADOL HYDROCHLORIDE
  8. DICLOFENAC SODIUM. [Concomitant]
     Active Substance: DICLOFENAC SODIUM
  9. TAMSULOSIN HCL (TAMSULOSIN HYDROCHLORIDE) [Concomitant]

REACTIONS (7)
  - Lacrimation increased [None]
  - Angle closure glaucoma [None]
  - Blindness [None]
  - Insomnia [None]
  - Migraine [None]
  - Nausea [None]
  - Treatment failure [None]
